FAERS Safety Report 4995014-7 (Version None)
Quarter: 2006Q2

REPORT INFORMATION
  Report Type: 
  Country: None (occurrence: None)
  Receive Date: 20060508
  Receipt Date: 20050808
  Transmission Date: 20061013
  Serious: Yes (Other)
  Sender: FDA-Public Use
  Company Number: US-GLAXOSMITHKLINE-A0569266A

PATIENT
  Age: 66 Year
  Sex: Male

DRUGS (4)
  1. WELLBUTRIN XL [Suspect]
     Indication: DEPRESSION
     Dosage: 150MG PER DAY
     Route: 048
     Dates: start: 20050812
  2. LAMICTAL [Suspect]
     Indication: BIPOLAR DISORDER
     Route: 048
     Dates: start: 20050501
  3. CLONAZEPAM [Suspect]
  4. UNSPECIFIED CREAM [Concomitant]
     Route: 061

REACTIONS (24)
  - AGGRESSION [None]
  - AGITATION [None]
  - ALTERED VISUAL DEPTH PERCEPTION [None]
  - APATHY [None]
  - BALANCE DISORDER [None]
  - BRADYPHRENIA [None]
  - CHEST PAIN [None]
  - CLUMSINESS [None]
  - CONFUSIONAL STATE [None]
  - CONSTIPATION [None]
  - COORDINATION ABNORMAL [None]
  - DECREASED APPETITE [None]
  - DEPRESSED LEVEL OF CONSCIOUSNESS [None]
  - DIZZINESS [None]
  - DRUG INEFFECTIVE [None]
  - DRUG INTERACTION [None]
  - EARLY MORNING AWAKENING [None]
  - HEADACHE [None]
  - INSOMNIA [None]
  - LIBIDO DECREASED [None]
  - MUSCULAR WEAKNESS [None]
  - MYALGIA [None]
  - TEMPERATURE INTOLERANCE [None]
  - VISUAL ACUITY REDUCED [None]
